FAERS Safety Report 10041205 (Version 1)
Quarter: 2014Q1

REPORT INFORMATION
  Report Type: Spontaneous
  Country: NG (occurrence: NG)
  Receive Date: 20140327
  Receipt Date: 20140327
  Transmission Date: 20141002
  Serious: Yes (Other)
  Sender: FDA-Public Use
  Company Number: NG-PFIZER INC-2014083325

PATIENT
  Age: 30 Year
  Sex: 0

DRUGS (1)
  1. VIAGRA [Suspect]
     Dosage: UNK
     Dates: start: 2011

REACTIONS (5)
  - Drug abuse [Unknown]
  - Fatigue [Unknown]
  - Pain [Unknown]
  - Arthralgia [Unknown]
  - Dizziness [Unknown]
